FAERS Safety Report 18425465 (Version 23)
Quarter: 2025Q1

REPORT INFORMATION
  Report Type: Report from Study
  Country: DE (occurrence: DE)
  Receive Date: 20201026
  Receipt Date: 20250126
  Transmission Date: 20250409
  Serious: Yes (Hospitalization, Other)
  Sender: ROCHE
  Company Number: DE-ROCHE-2562874

PATIENT
  Age: 24 Year
  Sex: Female

DRUGS (15)
  1. OCREVUS [Suspect]
     Active Substance: OCRELIZUMAB
     Indication: Relapsing-remitting multiple sclerosis
     Dosage: ^600 MG 168 DAYS
     Route: 040
     Dates: start: 20191216
  2. OCREVUS [Suspect]
     Active Substance: OCRELIZUMAB
     Route: 040
     Dates: start: 202007
  3. OCREVUS [Suspect]
     Active Substance: OCRELIZUMAB
     Route: 040
     Dates: start: 202101
  4. OCREVUS [Suspect]
     Active Substance: OCRELIZUMAB
     Route: 040
  5. COMIRNATY (TOZINAMERAN) [Suspect]
     Active Substance: TOZINAMERAN
     Indication: COVID-19 immunisation
     Route: 065
  6. VITAMIN C [Concomitant]
     Active Substance: ASCORBIC ACID
  7. VITAMIN B6 [Concomitant]
     Active Substance: PYRIDOXINE HYDROCHLORIDE
  8. MENAQUINONE 6 [Concomitant]
     Active Substance: MENAQUINONE 6
  9. IRON [Concomitant]
     Active Substance: IRON
  10. FOLIC ACID [Concomitant]
     Active Substance: FOLIC ACID
  11. CALCIUM [Concomitant]
     Active Substance: CALCIUM
  12. SELENIUM [Concomitant]
     Active Substance: SELENIUM
  13. FRANKINCENSE [Concomitant]
     Active Substance: FRANKINCENSE
  14. ZINC [Concomitant]
     Active Substance: ZINC
  15. MIRTAZAPINE [Concomitant]
     Active Substance: MIRTAZAPINE

REACTIONS (19)
  - Cough [Recovered/Resolved]
  - COVID-19 [Recovered/Resolved]
  - International normalised ratio increased [Recovered/Resolved]
  - Chest pain [Recovered/Resolved]
  - Alopecia [Recovered/Resolved]
  - Fatigue [Recovered/Resolved]
  - Asthma [Not Recovered/Not Resolved]
  - SARS-CoV-2 antibody test negative [Not Recovered/Not Resolved]
  - Body temperature increased [Recovered/Resolved]
  - Headache [Recovered/Resolved]
  - Back pain [Not Recovered/Not Resolved]
  - Vision blurred [Not Recovered/Not Resolved]
  - Blood immunoglobulin G decreased [Not Recovered/Not Resolved]
  - Visual field defect [Recovered/Resolved]
  - Heart rate increased [Recovered/Resolved]
  - Vomiting [Recovered/Resolved]
  - Nausea [Recovered/Resolved]
  - Abdominal discomfort [Recovered/Resolved]
  - Influenza like illness [Not Recovered/Not Resolved]

NARRATIVE: CASE EVENT DATE: 20200219
